FAERS Safety Report 5738252-8 (Version None)
Quarter: 2008Q2

REPORT INFORMATION
  Report Type: 
  Country: None (occurrence: None)
  Receive Date: 20080514
  Receipt Date: 20080502
  Transmission Date: 20081010
  Serious: Yes (Hospitalization)
  Sender: FDA-Public Use
  Company Number: JP-PFIZER INC-2008038438

PATIENT
  Age: 49 Year
  Sex: Female

DRUGS (2)
  1. ADRIACIN [Suspect]
     Indication: BREAST CANCER
     Route: 042
     Dates: start: 20070314, end: 20070501
  2. ENDOXAN [Suspect]
     Indication: BREAST CANCER
     Route: 042
     Dates: start: 20070314, end: 20070501

REACTIONS (2)
  - ACUTE HEPATIC FAILURE [None]
  - PANCYTOPENIA [None]
